FAERS Safety Report 6736671-4 (Version None)
Quarter: 2010Q2

REPORT INFORMATION
  Report Type: 
  Country: None (occurrence: None)
  Receive Date: 20100521
  Receipt Date: 20100510
  Transmission Date: 20101027
  Serious: Yes (Disabling, Other)
  Sender: FDA-Public Use
  Company Number: PHHY2010US13578

PATIENT
  Sex: Female

DRUGS (11)
  1. EXTAVIA [Suspect]
     Indication: MULTIPLE SCLEROSIS
     Dosage: 0.25 MG, QOD
     Route: 058
     Dates: start: 20100301
  2. OXYCONTIN [Concomitant]
     Indication: PAIN
     Dosage: UNK,UNK
  3. CYMBALTA [Concomitant]
     Dosage: UNK,UNK
  4. LEXAPRO [Concomitant]
     Dosage: 40 MG, BID
     Route: 048
  5. ASACOL [Concomitant]
     Dosage: 400 MG, BID
     Route: 048
  6. CIPRO [Concomitant]
     Dosage: 100 MG, TID
  7. FLAGYL [Concomitant]
     Dosage: 100 MG, BID
  8. ELAVIL [Concomitant]
     Dosage: UNK,UNK
  9. VALIUM [Concomitant]
     Dosage: A SLEEPING PILL AT NIGHT
  10. TOPAMAX [Concomitant]
     Indication: CONVULSION
     Dosage: TWICE A DAY
  11. VISTARIL [Concomitant]
     Indication: NAUSEA
     Dosage: UNK,UNK

REACTIONS (11)
  - BEDRIDDEN [None]
  - COUGH [None]
  - HEADACHE [None]
  - INFLUENZA LIKE ILLNESS [None]
  - INJECTION SITE ERYTHEMA [None]
  - INJECTION SITE WARMTH [None]
  - INSOMNIA [None]
  - LOWER RESPIRATORY TRACT INFECTION [None]
  - MYALGIA [None]
  - OROPHARYNGEAL PAIN [None]
  - PYREXIA [None]
